FAERS Safety Report 10869262 (Version 2)
Quarter: 2015Q1

REPORT INFORMATION
  Report Type: Spontaneous
  Country: AT (occurrence: AT)
  Receive Date: 20150225
  Receipt Date: 20150312
  Transmission Date: 20150721
  Serious: Yes (Other)
  Sender: FDA-Public Use
  Company Number: AT-AMGEN-AUTSP2015016147

PATIENT
  Age: 81 Year
  Sex: Female
  Weight: 78 kg

DRUGS (13)
  1. VASONIT                            /00003201/ [Concomitant]
     Dosage: 400 MG, QD
  2. CIPRALEX [Concomitant]
     Active Substance: ESCITALOPRAM OXALATE
     Dosage: 10 MG, QD
  3. OCULOTECT FLUID SINE [Concomitant]
     Dosage: UNK UNK, QD
  4. MAXI-KALZ                          /00751520/ [Concomitant]
     Dosage: 8 G, QD
     Dates: start: 200312
  5. PANTOPRAZOL GENERICON [Concomitant]
     Dosage: 20 MG, QD
  6. CRESTOR [Concomitant]
     Active Substance: ROSUVASTATIN CALCIUM
     Dosage: 10 MG, Q3WK
  7. MAGNONORM [Concomitant]
     Active Substance: MAGNESIUM
     Dosage: UNK UNK, QD
  8. OLEOVIT D3 [Concomitant]
     Dosage: 12.5 ML, QWK
  9. OLMETEC [Concomitant]
     Active Substance: OLMESARTAN MEDOXOMIL
     Dosage: 20 MG, QD
  10. XEFO [Concomitant]
     Active Substance: LORNOXICAM
     Dosage: 8 MG, QD
  11. PROLIA [Suspect]
     Active Substance: DENOSUMAB
     Indication: OSTEOPOROSIS
     Dosage: 60 MG, Q6MO
     Route: 058
     Dates: start: 201312
  12. RHEUTROP [Concomitant]
     Dosage: UNK UNK, QD
  13. INKONTAN [Concomitant]
     Dosage: 15 MG, QD

REACTIONS (5)
  - Ear pain [Not Recovered/Not Resolved]
  - Pain [Not Recovered/Not Resolved]
  - Osteonecrosis of jaw [Not Recovered/Not Resolved]
  - Headache [Not Recovered/Not Resolved]
  - Burning sensation [Not Recovered/Not Resolved]

NARRATIVE: CASE EVENT DATE: 201404
